FAERS Safety Report 11732831 (Version 1)
Quarter: 2015Q4

REPORT INFORMATION
  Report Type: Spontaneous
  Country: US (occurrence: US)
  Receive Date: 20151110
  Receipt Date: 20151110
  Transmission Date: 20160304
  Serious: No
  Sender: FDA-Public Use
  Company Number: US-ELI_LILLY_AND_COMPANY-US201203008020

PATIENT
  Age: 80 Year
  Sex: Female

DRUGS (3)
  1. ASPIRIN. [Concomitant]
     Active Substance: ASPIRIN
     Dosage: UNK
  2. FORTEO [Suspect]
     Active Substance: TERIPARATIDE
     Indication: OSTEOPOROSIS
     Dosage: 20 UG, QD
     Route: 065
     Dates: start: 20120302, end: 201203
  3. FORTEO [Suspect]
     Active Substance: TERIPARATIDE
     Dosage: 20 UG, QOD
     Route: 065
     Dates: start: 201203

REACTIONS (11)
  - Lung disorder [Recovered/Resolved]
  - Musculoskeletal discomfort [Recovered/Resolved]
  - Myalgia [Not Recovered/Not Resolved]
  - Headache [Unknown]
  - Blood pressure fluctuation [Recovered/Resolved]
  - Intentional product misuse [Recovered/Resolved]
  - Pain [Not Recovered/Not Resolved]
  - Adverse drug reaction [Unknown]
  - Bone pain [Not Recovered/Not Resolved]
  - Chest discomfort [Recovered/Resolved]
  - Blood pressure increased [Recovered/Resolved]

NARRATIVE: CASE EVENT DATE: 201203
